FAERS Safety Report 21659821 (Version 1)
Quarter: 2022Q4

REPORT INFORMATION
  Report Type: Spontaneous
  Country: US (occurrence: US)
  Receive Date: 20221130
  Receipt Date: 20221130
  Transmission Date: 20230112
  Serious: No
  Sender: FDA-Public Use
  Company Number: US-ORGANON-O2211USA002411

PATIENT
  Sex: Male

DRUGS (4)
  1. PREGNYL [Suspect]
     Active Substance: CHORIOGONADOTROPIN ALFA
     Indication: Hypogonadism male
     Dosage: 10.000 UNIT MDV 60, DOSE 10000 UNIT, 3 TIMES WEEKLY
     Route: 030
     Dates: start: 20220426
  2. STERILE WATER [Suspect]
     Active Substance: WATER
     Indication: Hypogonadism male
     Dosage: MIX 10000 UNITS POWDER WITH 10 ML OF DILUENT AND INJECTION 1 ML (1000UNITS) 3 TIMES WEEKLY
     Route: 030
     Dates: start: 20220426
  3. FOLLITROPIN\LUTEINIZING HORMONE [Concomitant]
     Active Substance: FOLLITROPIN\LUTEINIZING HORMONE
     Dosage: SDV W/Q-CAP
  4. HYDROXYZINE HYDROCHLORIDE [Concomitant]
     Active Substance: HYDROXYZINE HYDROCHLORIDE
     Dosage: UNK

REACTIONS (1)
  - Hot flush [Unknown]

NARRATIVE: CASE EVENT DATE: 20220101
